FAERS Safety Report 8376196-6 (Version None)
Quarter: 2012Q2

REPORT INFORMATION
  Report Type: 
  Country: None (occurrence: None)
  Receive Date: 20120522
  Receipt Date: 20120515
  Transmission Date: 20120825
  Serious: Yes (Other)
  Sender: FDA-Public Use
  Company Number: US-BAYER-2012-049203

PATIENT
  Age: 40 Year
  Sex: Female
  Weight: 95.147 kg

DRUGS (20)
  1. CEPHALEXIN [Concomitant]
     Indication: BARTHOLIN'S CYST
     Dosage: 500 MG, CAPSULE
     Dates: start: 20120305
  2. VENTOLIN [Concomitant]
     Indication: SINUSITIS
     Dosage: 90MCG
     Route: 055
     Dates: start: 20120104, end: 20120116
  3. NICOTINE [Concomitant]
     Indication: EX-TOBACCO USER
     Dosage: 21 MG/24HR, UNK
     Route: 062
     Dates: start: 20120104
  4. GEODON [Concomitant]
     Indication: BIPOLAR DISORDER
     Dosage: 80MG CAPSULE
     Dates: start: 20111207, end: 20120202
  5. LEXAPRO [Concomitant]
     Dosage: 10MG TABLET
     Dates: start: 20120103, end: 20120202
  6. GEODON [Concomitant]
     Dosage: UNK
     Dates: start: 20120107, end: 20120315
  7. SYNTHROID [Concomitant]
     Dosage: UNK
     Route: 048
     Dates: start: 20120226, end: 20120315
  8. TRAMADOL HYDROCHLORIDE [Concomitant]
     Dosage: 50 MG,TABLET
     Dates: start: 20120315
  9. CIPROFLOXACIN [Concomitant]
     Indication: SINUSITIS
     Dosage: 500 MG,TAB
     Dates: start: 20120104, end: 20120116
  10. EXCEDRIN (MIGRAINE) [Concomitant]
     Indication: BACK PAIN
     Dosage: UNK
     Dates: start: 20120221, end: 20120315
  11. KEFLEX [Concomitant]
     Dosage: 500MG, 2 TABS TWICE A DAY X 10 DAYS
     Dates: start: 20120305, end: 20120314
  12. HYDROCODONE BITARTRATE + ACETAMINOPHEN [Concomitant]
     Dosage: UNK
     Dates: start: 20120315
  13. DROSPIRENONE AND ETHINYL ESTRADIOL [Suspect]
  14. CHANTIX [Concomitant]
     Dosage: UNK
     Dates: start: 20120303
  15. SYNTHROID [Concomitant]
     Indication: HYPOTHYROIDISM
     Dosage: 25MCG TABLET
     Route: 048
     Dates: start: 20111217, end: 20120218
  16. SEROQUEL [Concomitant]
  17. YAZ [Suspect]
     Indication: PREMENSTRUAL SYNDROME
  18. HYCODAN [Concomitant]
     Dosage: UNK
     Dates: start: 20120104
  19. CHANTIX [Concomitant]
     Indication: EX-TOBACCO USER
     Dosage: UNK
     Dates: start: 20120202
  20. LEXAPRO [Concomitant]
     Dosage: UNK
     Dates: start: 20120303, end: 20120315

REACTIONS (1)
  - DEEP VEIN THROMBOSIS [None]
